FAERS Safety Report 15344780 (Version 2)
Quarter: 2018Q4

REPORT INFORMATION
  Report Type: Spontaneous
  Country: ZA (occurrence: ZA)
  Receive Date: 20180903
  Receipt Date: 20181031
  Transmission Date: 20190204
  Serious: Yes (Hospitalization, Disabling, Other)
  Sender: FDA-Public Use
  Company Number: PHHY2018ZA082748

PATIENT
  Age: 39 Year
  Sex: Female
  Weight: 72 kg

DRUGS (3)
  1. SIGNIFOR LAR [Suspect]
     Active Substance: PASIREOTIDE
     Indication: CUSHING^S SYNDROME
     Dosage: 40 MG, QMO
     Route: 030
     Dates: start: 20180726, end: 20180706
  2. SANDOSTATIN [Suspect]
     Active Substance: OCTREOTIDE ACETATE
     Indication: CUSHING^S SYNDROME
     Dosage: 200 UG, TID
     Route: 058
     Dates: start: 20180720, end: 20180721
  3. SANDOSTATIN [Suspect]
     Active Substance: OCTREOTIDE ACETATE
     Dosage: 100 UG, TID
     Route: 058
     Dates: start: 20180721, end: 20180731

REACTIONS (6)
  - Cortisol abnormal [Unknown]
  - Product use in unapproved indication [Unknown]
  - Metastatic neoplasm [Recovered/Resolved]
  - Metastasis [Unknown]
  - Diarrhoea [Recovered/Resolved]
  - Adrenal gland cancer [Unknown]

NARRATIVE: CASE EVENT DATE: 20180721
